FAERS Safety Report 7972451 (Version 3)
Quarter: 2013Q4

REPORT INFORMATION
  Report Type: Spontaneous
  Country: US (occurrence: US)
  Receive Date: 20110603
  Receipt Date: 20131211
  Transmission Date: 20140711
  Serious: Yes (Hospitalization, Other)
  Sender: FDA-Public Use
  Company Number: US-BAYER-2010-002064

PATIENT
  Age: 25 Year
  Sex: Female
  Weight: 140.59 kg

DRUGS (4)
  1. YASMIN [Suspect]
     Dosage: UNK
     Dates: start: 200301, end: 200805
  2. SKELAXIN [Concomitant]
     Dosage: UNK
     Route: 048
     Dates: start: 20040526
  3. LORTAB [Concomitant]
     Dosage: UNK
     Route: 048
     Dates: start: 20040526
  4. NORVASC [Concomitant]
     Dosage: UNK
     Route: 048
     Dates: start: 20040526

REACTIONS (3)
  - Gallbladder injury [None]
  - Thrombosis [None]
  - Cholecystitis chronic [None]
